FAERS Safety Report 4396564-7 (Version None)
Quarter: 2004Q2

REPORT INFORMATION
  Report Type: 
  Country: None (occurrence: None)
  Receive Date: 20040524
  Receipt Date: 20040224
  Transmission Date: 20050107
  Serious: Yes (Hospitalization)
  Sender: FDA-Public Use
  Company Number: WSDF_00381

PATIENT
  Age: 7 Year
  Sex: Male
  Weight: 23.7 kg

DRUGS (3)
  1. WINRHO SDF [Suspect]
     Indication: IDIOPATHIC THROMBOCYTOPENIC PURPURA
     Dosage: 75 MCG/KG ONCE IV
     Route: 042
     Dates: start: 20040217, end: 20040217
  2. DIPHENHYDRAMINE [Concomitant]
  3. ACETAMINOPHEN [Concomitant]

REACTIONS (3)
  - HEADACHE [None]
  - NAUSEA [None]
  - VOMITING [None]
